FAERS Safety Report 10145172 (Version 3)
Quarter: 2014Q4

REPORT INFORMATION
  Report Type: Spontaneous
  Country: US (occurrence: US)
  Receive Date: 20140501
  Receipt Date: 20141110
  Transmission Date: 20150528
  Serious: No
  Sender: FDA-Public Use
  Company Number: US-BIOGENIDEC-2014BI011534

PATIENT
  Age: 59 Year
  Sex: Female

DRUGS (14)
  1. TECFIDERA [Suspect]
     Active Substance: DIMETHYL FUMARATE
     Indication: MULTIPLE SCLEROSIS
     Route: 048
     Dates: start: 20140131
  2. AMPHETAMINE SALT COMBO [Concomitant]
  3. AMBIEN [Concomitant]
     Active Substance: ZOLPIDEM TARTRATE
  4. DIAZEPAM. [Concomitant]
     Active Substance: DIAZEPAM
  5. LISINOPRIL. [Concomitant]
     Active Substance: LISINOPRIL
  6. OXYCODONE HCL [Concomitant]
     Active Substance: OXYCODONE HYDROCHLORIDE
  7. TIZANDINE [Concomitant]
  8. FLONASE [Concomitant]
     Active Substance: FLUTICASONE PROPIONATE
  9. POT CLAVULANATE [Concomitant]
  10. BACLOFEN. [Concomitant]
     Active Substance: BACLOFEN
  11. ESTRADIOL VALERATE. [Concomitant]
     Active Substance: ESTRADIOL VALERATE
  12. GABAPENTIN. [Concomitant]
     Active Substance: GABAPENTIN
  13. AMOXICILLIN. [Concomitant]
     Active Substance: AMOXICILLIN
  14. FENTANYL. [Concomitant]
     Active Substance: FENTANYL

REACTIONS (3)
  - Urticaria [Not Recovered/Not Resolved]
  - Eye operation [Unknown]
  - Flushing [Not Recovered/Not Resolved]

NARRATIVE: CASE EVENT DATE: 201404
